FAERS Safety Report 12267472 (Version 2)
Quarter: 2017Q2

REPORT INFORMATION
  Report Type: Spontaneous
  Country: GB (occurrence: GB)
  Receive Date: 20160414
  Receipt Date: 20170621
  Transmission Date: 20170830
  Serious: Yes (Hospitalization, Other)
  Sender: FDA-Public Use
  Company Number: GB-SUN PHARMACEUTICAL INDUSTRIES LTD-2016R1-114555

PATIENT
  Age: 25 Year
  Sex: Male

DRUGS (1)
  1. MEPROBAMATE. [Suspect]
     Active Substance: MEPROBAMATE
     Indication: ANXIETY
     Dosage: 6 G, DAILY
     Route: 065

REACTIONS (9)
  - Drug withdrawal syndrome [Recovered/Resolved]
  - Anxiety [Unknown]
  - Nausea [Unknown]
  - Mucosal ulceration [Unknown]
  - Disinhibition [Recovered/Resolved]
  - Self-medication [Unknown]
  - Drug use disorder [Recovered/Resolved]
  - Fatigue [Unknown]
  - Lethargy [Unknown]
